FAERS Safety Report 20298265 (Version 1)
Quarter: 2022Q1

REPORT INFORMATION
  Report Type: Spontaneous
  Country: GB (occurrence: GB)
  Receive Date: 20220105
  Receipt Date: 20220105
  Transmission Date: 20220423
  Serious: Yes (Other)
  Sender: FDA-Public Use
  Company Number: GB-NOVARTISPH-NVSC2021GB299816

PATIENT
  Age: 49 Year
  Sex: Male

DRUGS (17)
  1. LINEZOLID [Suspect]
     Active Substance: LINEZOLID
     Indication: Brain abscess
     Dosage: 600 MG, BID, DAY 9
     Route: 042
     Dates: start: 201811
  2. LINEZOLID [Suspect]
     Active Substance: LINEZOLID
     Indication: Nocardiosis
     Dosage: 600 MG, BID, DAY 13-44
     Route: 048
     Dates: start: 201811
  3. LINEZOLID [Suspect]
     Active Substance: LINEZOLID
     Dosage: 600 MG, QD, DAYS 45-106
     Route: 048
  4. MOXIFLOXACIN [Suspect]
     Active Substance: MOXIFLOXACIN
     Indication: Brain abscess
     Dosage: 800 MG, QD, DAYS 29-147
     Route: 048
     Dates: start: 201812
  5. MOXIFLOXACIN [Suspect]
     Active Substance: MOXIFLOXACIN
     Indication: Nocardiosis
     Dosage: 400 MG, BID
     Route: 048
  6. IMIPENEM [Suspect]
     Active Substance: IMIPENEM
     Indication: Brain abscess
     Dosage: 500 MG, QD
     Route: 042
     Dates: start: 201811
  7. IMIPENEM [Suspect]
     Active Substance: IMIPENEM
     Indication: Nocardiosis
  8. SULFAMETHOXAZOLE\TRIMETHOPRIM [Suspect]
     Active Substance: SULFAMETHOXAZOLE\TRIMETHOPRIM
     Indication: Brain abscess
     Dosage: 15 MG/KG, QD DAYS 6-9
     Route: 042
     Dates: start: 201811
  9. SULFAMETHOXAZOLE\TRIMETHOPRIM [Suspect]
     Active Substance: SULFAMETHOXAZOLE\TRIMETHOPRIM
     Indication: Nocardiosis
  10. CEFTRIAXONE [Concomitant]
     Active Substance: CEFTRIAXONE
     Indication: Brain abscess
     Dosage: 2 G, BID, DAYS 3-6
     Route: 042
     Dates: start: 201811
  11. CEFTRIAXONE [Concomitant]
     Active Substance: CEFTRIAXONE
     Indication: Nocardiosis
  12. METRONIDAZOLE [Concomitant]
     Active Substance: METRONIDAZOLE
     Indication: Brain abscess
     Dosage: 500 MG, TID, DAYS 3-6
     Route: 042
     Dates: start: 201811
  13. METRONIDAZOLE [Concomitant]
     Active Substance: METRONIDAZOLE
     Indication: Nocardiosis
  14. MEROPENEM [Concomitant]
     Active Substance: MEROPENEM
     Indication: Brain abscess
     Dosage: 2 G, TID, DAY 39-134
     Route: 042
     Dates: start: 201812
  15. MEROPENEM [Concomitant]
     Active Substance: MEROPENEM
     Indication: Nocardiosis
     Dosage: 1 G, TID, DAYS 135-188
     Route: 042
  16. AMOXICILLIN\CLAVULANATE POTASSIUM [Concomitant]
     Active Substance: AMOXICILLIN\CLAVULANATE POTASSIUM
     Indication: Brain abscess
     Dosage: 625 MG,TID, DAY189 ONWARDS
     Route: 048
     Dates: start: 201905
  17. AMOXICILLIN\CLAVULANATE POTASSIUM [Concomitant]
     Active Substance: AMOXICILLIN\CLAVULANATE POTASSIUM
     Indication: Nocardiosis

REACTIONS (5)
  - Transaminases increased [Recovered/Resolved]
  - Haemoglobin decreased [Unknown]
  - Gastrointestinal disorder [Unknown]
  - Tendonitis [Unknown]
  - Product use in unapproved indication [Unknown]
